FAERS Safety Report 10247313 (Version 1)
Quarter: 2014Q2

REPORT INFORMATION
  Report Type: Spontaneous
  Country: NL (occurrence: NL)
  Receive Date: 20140619
  Receipt Date: 20140619
  Transmission Date: 20141212
  Serious: Yes (Other)
  Sender: FDA-Public Use
  Company Number: NL-JNJFOC-20140605237

PATIENT
  Age: 54 Year
  Sex: Female

DRUGS (8)
  1. DUROGESIC [Suspect]
     Indication: PAIN
     Route: 062
     Dates: start: 20140326, end: 20140410
  2. CARBAMAZEPINE [Concomitant]
     Route: 048
  3. ARCOXIA [Concomitant]
     Route: 048
  4. OMEPRAZOLE [Concomitant]
     Route: 048
  5. LORAZEPAM [Concomitant]
     Route: 048
  6. CALCICHEW-D3 [Concomitant]
     Route: 048
  7. ACENOCOUMAROL [Concomitant]
     Route: 048
  8. DIAZEPAM [Concomitant]
     Route: 048

REACTIONS (3)
  - Stevens-Johnson syndrome [Recovered/Resolved with Sequelae]
  - Erythema [Recovered/Resolved with Sequelae]
  - Skin exfoliation [Recovered/Resolved with Sequelae]
